FAERS Safety Report 21741248 (Version 2)
Quarter: 2022Q4

REPORT INFORMATION
  Report Type: Spontaneous
  Country: FR (occurrence: FR)
  Receive Date: 20221216
  Receipt Date: 20221221
  Transmission Date: 20230113
  Serious: Yes (Hospitalization, Other)
  Sender: FDA-Public Use
  Company Number: None

PATIENT
  Age: 91 Year
  Sex: Female
  Weight: 70 kg

DRUGS (9)
  1. BILASTINE [Suspect]
     Active Substance: BILASTINE
     Dosage: 20 MG, 1X/DAY (20 MILLIGRAM, QD)
     Route: 048
     Dates: end: 20221028
  2. SPIRONOLACTONE [Suspect]
     Active Substance: SPIRONOLACTONE
     Dosage: 12.5 MG, 1X/DAY (12.5 MILLIGRAM, QD)
     Route: 048
     Dates: end: 20221028
  3. TOVIAZ [Suspect]
     Active Substance: FESOTERODINE FUMARATE
     Dosage: UNK (DOSE UNSPECIFIED)
     Route: 048
     Dates: end: 20221027
  4. OMEPRAZOLE [Suspect]
     Active Substance: OMEPRAZOLE
     Dosage: 20 MG, 1X/DAY (20 MILLIGRAM, QD)
     Route: 048
     Dates: end: 20221028
  5. HYDROCHLOROTHIAZIDE [Suspect]
     Active Substance: HYDROCHLOROTHIAZIDE
     Dosage: 25 MG, 1X/DAY (25 MILLIGRAM, QD)
     Route: 048
     Dates: end: 20221028
  6. POLYETHYLENE GLYCOLS [Suspect]
     Active Substance: POLYETHYLENE GLYCOLS
     Dosage: 50 MG, 1X/DAY (50 MILLIGRAM, QD)
     Route: 048
     Dates: end: 20221028
  7. ETIFOXINE [Suspect]
     Active Substance: ETIFOXINE
     Dosage: 50 MG, 1X/DAY (50 MILLIGRAM, QD)(STRESAM JELLY)
     Route: 048
     Dates: end: 20221028
  8. DOLIPRANE [Concomitant]
     Active Substance: ACETAMINOPHEN
     Dosage: UNK
  9. ERGOCALCIFEROL [Concomitant]
     Active Substance: ERGOCALCIFEROL
     Dosage: UNK

REACTIONS (1)
  - Urinary retention [Recovered/Resolved]

NARRATIVE: CASE EVENT DATE: 20221027
